FAERS Safety Report 5381098-3 (Version None)
Quarter: 2007Q3

REPORT INFORMATION
  Report Type: 
  Country: None (occurrence: None)
  Receive Date: 20070706
  Receipt Date: 20070625
  Transmission Date: 20080115
  Serious: Yes (Other)
  Sender: FDA-Public Use
  Company Number: US-PFIZER INC-2007015246

PATIENT
  Sex: Male

DRUGS (2)
  1. XALATAN [Suspect]
     Indication: GLAUCOMA
  2. BETAGAN [Suspect]
     Indication: GLAUCOMA

REACTIONS (2)
  - CATARACT OPERATION [None]
  - OCULAR HYPERAEMIA [None]
